FAERS Safety Report 7729030-9 (Version None)
Quarter: 2011Q3

REPORT INFORMATION
  Report Type: 
  Country: None (occurrence: None)
  Receive Date: 20110906
  Receipt Date: 20110826
  Transmission Date: 20111222
  Serious: Yes (Hospitalization)
  Sender: FDA-Public Use
  Company Number: IT-JNJFOC-20110812313

PATIENT
  Age: 12 Year
  Sex: Female

DRUGS (1)
  1. REMICADE [Suspect]
     Indication: CROHN'S DISEASE
     Route: 042
     Dates: start: 20110824, end: 20110824

REACTIONS (5)
  - EYELID OEDEMA [None]
  - INFUSION RELATED REACTION [None]
  - VOMITING [None]
  - CIRCUMORAL OEDEMA [None]
  - RESPIRATORY FATIGUE [None]
